FAERS Safety Report 21673085 (Version 1)
Quarter: 2022Q4

REPORT INFORMATION
  Report Type: Spontaneous
  Country: US (occurrence: US)
  Receive Date: 20221202
  Receipt Date: 20221202
  Transmission Date: 20230113
  Serious: Yes (Other)
  Sender: FDA-Public Use
  Company Number: US-002147023-NVSC2022US275502

PATIENT
  Age: 60 Year
  Sex: Male

DRUGS (2)
  1. MOXIFLOXACIN [Suspect]
     Active Substance: MOXIFLOXACIN
     Indication: Endophthalmitis
     Dosage: 0.2 ML, (UNDILUTED 0.5 PERCENT PRESERVATIVE-FREE)
  2. MOXIFLOXACIN [Suspect]
     Active Substance: MOXIFLOXACIN
     Indication: Prophylaxis
     Dosage: 0.1 ML, (INJECTED INTRASTROMALLY TO HYDRATE A SEGMENT OF THE CORNEAL LACERATION)
     Route: 021

REACTIONS (4)
  - Corneal decompensation [Unknown]
  - Toxic anterior segment syndrome [Unknown]
  - Product use in unapproved indication [Unknown]
  - Incorrect route of product administration [Unknown]
